FAERS Safety Report 19921121 (Version 1)
Quarter: 2021Q4

REPORT INFORMATION
  Report Type: Spontaneous
  Country: CA (occurrence: CA)
  Receive Date: 20211006
  Receipt Date: 20211006
  Transmission Date: 20220303
  Serious: Yes (Death)
  Sender: FDA-Public Use
  Company Number: CA-TEVA-2021-CA-1961239

PATIENT
  Age: 77 Year
  Sex: Male

DRUGS (4)
  1. CLOPIDOGREL [Suspect]
     Active Substance: CLOPIDOGREL BISULFATE
     Indication: Thrombosis prophylaxis
     Dosage: 75 MILLIGRAM DAILY;
     Route: 065
  2. ASPIRIN [Suspect]
     Active Substance: ASPIRIN
     Indication: Thrombosis prophylaxis
     Dosage: 81 MILLIGRAM DAILY;
     Route: 065
  3. ELIQUIS [Suspect]
     Active Substance: APIXABAN
     Indication: Thrombosis prophylaxis
     Dosage: 5 MILLIGRAM DAILY;
     Route: 065
  4. BRILINTA [Concomitant]
     Active Substance: TICAGRELOR

REACTIONS (7)
  - Duodenal ulcer [Fatal]
  - Duodenal ulcer haemorrhage [Fatal]
  - Gastric ulcer [Fatal]
  - Intestinal ischaemia [Fatal]
  - Melaena [Fatal]
  - Oesophagitis [Fatal]
  - Syncope [Fatal]
